FAERS Safety Report 23541530 (Version 2)
Quarter: 2024Q4

REPORT INFORMATION
  Report Type: Spontaneous
  Country: ES (occurrence: ES)
  Receive Date: 20240219
  Receipt Date: 20241129
  Transmission Date: 20250114
  Serious: Yes (Other)
  Sender: SANDOZ
  Company Number: ES-AMGEN-ESPSP2023211495

PATIENT
  Age: 40 Year
  Sex: Male

DRUGS (25)
  1. ADALIMUMAB [Suspect]
     Active Substance: ADALIMUMAB
     Indication: Inflammatory bowel disease
     Dosage: UNK
     Route: 065
  2. ADALIMUMAB [Suspect]
     Active Substance: ADALIMUMAB
     Indication: Axial spondyloarthritis
  3. ADALIMUMAB [Suspect]
     Active Substance: ADALIMUMAB
     Indication: Peripheral spondyloarthritis
  4. ADALIMUMAB [Suspect]
     Active Substance: ADALIMUMAB
     Indication: Uveitis
  5. CERTOLIZUMAB [Concomitant]
     Active Substance: CERTOLIZUMAB
     Indication: Axial spondyloarthritis
     Dosage: UNK
     Route: 065
  6. CERTOLIZUMAB [Concomitant]
     Active Substance: CERTOLIZUMAB
     Indication: Inflammatory bowel disease
  7. CERTOLIZUMAB [Concomitant]
     Active Substance: CERTOLIZUMAB
     Indication: Peripheral spondyloarthritis
  8. CERTOLIZUMAB [Concomitant]
     Active Substance: CERTOLIZUMAB
     Indication: Uveitis
  9. CERTOLIZUMAB PEGOL [Concomitant]
     Active Substance: CERTOLIZUMAB PEGOL
     Indication: Product used for unknown indication
     Dosage: UNK
     Route: 065
  10. ETANERCEPT [Concomitant]
     Active Substance: ETANERCEPT
     Indication: Peripheral spondyloarthritis
     Dosage: UNK
     Route: 065
  11. ETANERCEPT [Concomitant]
     Active Substance: ETANERCEPT
     Indication: Axial spondyloarthritis
  12. ETANERCEPT [Concomitant]
     Active Substance: ETANERCEPT
     Indication: Inflammatory bowel disease
  13. ETANERCEPT [Concomitant]
     Active Substance: ETANERCEPT
     Indication: Musculoskeletal disorder
  14. GOLIMUMAB [Concomitant]
     Active Substance: GOLIMUMAB
     Indication: Musculoskeletal disorder
     Dosage: UNK
     Route: 065
  15. GOLIMUMAB [Concomitant]
     Active Substance: GOLIMUMAB
     Indication: Axial spondyloarthritis
  16. GOLIMUMAB [Concomitant]
     Active Substance: GOLIMUMAB
     Indication: Inflammatory bowel disease
  17. GOLIMUMAB [Concomitant]
     Active Substance: GOLIMUMAB
     Indication: Peripheral spondyloarthritis
  18. INFLIXIMAB [Concomitant]
     Active Substance: INFLIXIMAB
     Indication: Peripheral spondyloarthritis
     Dosage: UNK
     Route: 065
  19. INFLIXIMAB [Concomitant]
     Active Substance: INFLIXIMAB
     Indication: Axial spondyloarthritis
  20. INFLIXIMAB [Concomitant]
     Active Substance: INFLIXIMAB
     Indication: Inflammatory bowel disease
  21. INFLIXIMAB [Concomitant]
     Active Substance: INFLIXIMAB
     Indication: Uveitis
  22. USTEKINUMAB [Concomitant]
     Active Substance: USTEKINUMAB
     Indication: Axial spondyloarthritis
     Dosage: UNK
     Route: 065
  23. USTEKINUMAB [Concomitant]
     Active Substance: USTEKINUMAB
     Indication: Inflammatory bowel disease
  24. USTEKINUMAB [Concomitant]
     Active Substance: USTEKINUMAB
     Indication: Musculoskeletal disorder
  25. USTEKINUMAB [Concomitant]
     Active Substance: USTEKINUMAB
     Indication: Peripheral spondyloarthritis

REACTIONS (4)
  - Hypersensitivity pneumonitis [Unknown]
  - Peripheral spondyloarthritis [Unknown]
  - Axial spondyloarthritis [Unknown]
  - Spinal osteoarthritis [Unknown]
